FAERS Safety Report 10911566 (Version 1)
Quarter: 2015Q1

REPORT INFORMATION
  Report Type: Spontaneous
  Country: NL (occurrence: NL)
  Receive Date: 20150313
  Receipt Date: 20150313
  Transmission Date: 20150721
  Serious: Yes (Life-Threatening, Hospitalization, Other)
  Sender: FDA-Public Use
  Company Number: NL-ASTRAZENECA-2015SE21726

PATIENT
  Age: 20280 Day
  Sex: Male
  Weight: 90 kg

DRUGS (5)
  1. BRILIQUE [Suspect]
     Active Substance: TICAGRELOR
     Route: 048
  2. ASCAL CARDIO [Concomitant]
     Active Substance: CARBASALATE
     Route: 048
     Dates: start: 20140929
  3. OMEPRAZOL [Suspect]
     Active Substance: OMEPRAZOLE
     Route: 048
     Dates: start: 20150217, end: 20150222
  4. LOSARTAN [Suspect]
     Active Substance: LOSARTAN
     Route: 048
  5. PLAVIX [Suspect]
     Active Substance: CLOPIDOGREL BISULFATE
     Indication: MYOCARDIAL INFARCTION
     Route: 048
     Dates: start: 20150220

REACTIONS (1)
  - Anaphylactic shock [Recovered/Resolved]

NARRATIVE: CASE EVENT DATE: 20150222
